FAERS Safety Report 8136574-7 (Version None)
Quarter: 2012Q1

REPORT INFORMATION
  Report Type: 
  Country: None (occurrence: None)
  Receive Date: 20120214
  Receipt Date: 20120209
  Transmission Date: 20120608
  Serious: Yes (Other)
  Sender: FDA-Public Use
  Company Number: PHHY2012CA008808

PATIENT
  Sex: Male

DRUGS (4)
  1. GILENYA [Suspect]
     Indication: MULTIPLE SCLEROSIS
     Dosage: 0.5 MG, QD
     Route: 048
     Dates: start: 20110729
  2. CRESTOR [Concomitant]
  3. ATACAND [Concomitant]
  4. GABAPENTIN [Concomitant]

REACTIONS (1)
  - PSORIASIS [None]
